FAERS Safety Report 9722425 (Version 9)
Quarter: 2014Q1

REPORT INFORMATION
  Report Type: Report from Study
  Country: US (occurrence: US)
  Receive Date: 20131202
  Receipt Date: 20140204
  Transmission Date: 20141002
  Serious: Yes (Life-Threatening, Hospitalization, Other)
  Sender: FDA-Public Use
  Company Number: PHEH2013US024882

PATIENT
  Age: 48 Year
  Sex: Female

DRUGS (3)
  1. GILENYA [Suspect]
     Indication: MULTIPLE SCLEROSIS
     Dosage: 0.5 MG, QD
     Route: 048
     Dates: end: 20131118
  2. GILENYA [Suspect]
     Dosage: 0.5 MG, QD
     Route: 048
     Dates: start: 20140107
  3. ANTIEPILEPTICS [Suspect]

REACTIONS (28)
  - Toxic shock syndrome [Unknown]
  - Feeling abnormal [Unknown]
  - Cognitive disorder [Not Recovered/Not Resolved]
  - Memory impairment [Recovering/Resolving]
  - Hypophagia [Not Recovered/Not Resolved]
  - Musculoskeletal disorder [Not Recovered/Not Resolved]
  - Epilepsy [Recovering/Resolving]
  - Confusional state [Not Recovered/Not Resolved]
  - Convulsion [Unknown]
  - Head injury [Unknown]
  - Swelling [Recovering/Resolving]
  - Central nervous system lesion [Unknown]
  - Blindness [Not Recovered/Not Resolved]
  - Nausea [Unknown]
  - Tremor [Unknown]
  - Amnesia [Unknown]
  - Sleep disorder [Unknown]
  - Dyskinesia [Unknown]
  - Gait disturbance [Not Recovered/Not Resolved]
  - General physical health deterioration [Not Recovered/Not Resolved]
  - Balance disorder [Not Recovered/Not Resolved]
  - Fall [Unknown]
  - Speech disorder [Unknown]
  - Oral discomfort [Unknown]
  - Decreased appetite [Unknown]
  - Weight decreased [Unknown]
  - Dizziness [Not Recovered/Not Resolved]
  - Nasopharyngitis [Unknown]
